FAERS Safety Report 8011885-4 (Version None)
Quarter: 2011Q4

REPORT INFORMATION
  Report Type: 
  Country: None (occurrence: None)
  Receive Date: 20111228
  Receipt Date: 20111221
  Transmission Date: 20120403
  Serious: Yes (Other)
  Sender: FDA-Public Use
  Company Number: AT-ABBOTT-11P-009-0885880-00

PATIENT
  Sex: Female

DRUGS (1)
  1. HUMIRA [Suspect]
     Indication: CROHN'S DISEASE
     Dosage: 160/80/40

REACTIONS (8)
  - FAECAL INCONTINENCE [None]
  - PRURITUS [None]
  - EXFOLIATIVE RASH [None]
  - DRUG INEFFECTIVE [None]
  - EMOTIONAL DISTRESS [None]
  - SKIN EXFOLIATION [None]
  - PSORIASIS [None]
  - ANAL FISTULA [None]
